FAERS Safety Report 16019455 (Version 1)
Quarter: 2019Q1

REPORT INFORMATION
  Report Type: Spontaneous
  Country: US (occurrence: US)
  Receive Date: 20190228
  Receipt Date: 20190228
  Transmission Date: 20190418
  Serious: Yes (Other)
  Sender: FDA-Public Use
  Company Number: US-PFIZER INC-2019073077

PATIENT
  Age: 65 Year
  Sex: Male
  Weight: 83.46 kg

DRUGS (4)
  1. METOPROLOL. [Interacting]
     Active Substance: METOPROLOL
     Indication: HYPERTENSION
     Dosage: 50 MG, 1X/DAY
     Route: 048
     Dates: start: 201806
  2. METOPROLOL. [Interacting]
     Active Substance: METOPROLOL
     Indication: HYPERTENSION
  3. FIBERCON [Suspect]
     Active Substance: CALCIUM POLYCARBOPHIL
     Indication: GASTROINTESTINAL DISORDER
     Dosage: 625 MG, 2X/DAY
     Route: 048
  4. FENOFIBRATE. [Interacting]
     Active Substance: FENOFIBRATE
     Indication: BLOOD PRESSURE ABNORMAL
     Dosage: 145 MG, 1X/DAY [145 MG, ONCE A DAY AT BEDTIME]

REACTIONS (3)
  - Hypertension [Unknown]
  - Myocardial infarction [Unknown]
  - Drug interaction [Unknown]

NARRATIVE: CASE EVENT DATE: 20180620
